FAERS Safety Report 23234658 (Version 1)
Quarter: 2023Q4

REPORT INFORMATION
  Report Type: Spontaneous
  Country: CO (occurrence: CO)
  Receive Date: 20231128
  Receipt Date: 20231128
  Transmission Date: 20240110
  Serious: Yes (Other)
  Sender: FDA-Public Use
  Company Number: CO-BAYER-2023A168280

PATIENT
  Sex: Female

DRUGS (2)
  1. ESTRADIOL [Suspect]
     Active Substance: ESTRADIOL
     Dosage: UNK
     Route: 062
     Dates: start: 20231115, end: 20231121
  2. ESTRADIOL [Suspect]
     Active Substance: ESTRADIOL
     Dosage: UNK
     Route: 062
     Dates: start: 20231121, end: 20231121

REACTIONS (6)
  - Anaphylactic shock [Recovering/Resolving]
  - Application site pruritus [Not Recovered/Not Resolved]
  - Hypotension [Recovering/Resolving]
  - Tachycardia [Recovering/Resolving]
  - Fatigue [Recovering/Resolving]
  - Dizziness [Recovering/Resolving]

NARRATIVE: CASE EVENT DATE: 20231115
